FAERS Safety Report 7346809-6 (Version None)
Quarter: 2011Q1

REPORT INFORMATION
  Report Type: 
  Country: None (occurrence: None)
  Receive Date: 20110311
  Receipt Date: 20110301
  Transmission Date: 20110831
  Serious: Yes (Hospitalization)
  Sender: FDA-Public Use
  Company Number: US-JNJFOC-20110300128

PATIENT
  Sex: Female
  Weight: 42.4 kg

DRUGS (8)
  1. MESALAMINE [Concomitant]
     Route: 048
  2. BENTYL [Concomitant]
  3. INFLIXIMAB, RECOMBINANT [Suspect]
     Route: 042
  4. PREVACID [Concomitant]
  5. INFLIXIMAB, RECOMBINANT [Suspect]
     Route: 042
  6. INFLIXIMAB, RECOMBINANT [Suspect]
     Route: 042
  7. INFLIXIMAB, RECOMBINANT [Suspect]
     Indication: INFLAMMATORY BOWEL DISEASE
     Route: 042
  8. BUDESONIDE [Concomitant]

REACTIONS (1)
  - CROHN'S DISEASE [None]
